FAERS Safety Report 15867337 (Version 1)
Quarter: 2019Q1

REPORT INFORMATION
  Report Type: Spontaneous
  Country: FR (occurrence: FR)
  Receive Date: 20190125
  Receipt Date: 20190125
  Transmission Date: 20190417
  Serious: Yes (Other)
  Sender: FDA-Public Use
  Company Number: FR-JNJFOC-20190120878

PATIENT
  Age: 58 Year
  Sex: Male

DRUGS (19)
  1. ZYPREXA [Interacting]
     Active Substance: OLANZAPINE
     Indication: KORSAKOFF^S SYNDROME
     Route: 048
  2. THERALENE [Interacting]
     Active Substance: TRIMEPRAZINE
     Indication: INSOMNIA
     Route: 048
  3. TRANXENE [Interacting]
     Active Substance: CLORAZEPATE DIPOTASSIUM
     Indication: PSYCHIATRIC DISORDER PROPHYLAXIS
     Route: 048
  4. ATARAX [Interacting]
     Active Substance: HYDROXYZINE HYDROCHLORIDE
     Indication: KORSAKOFF^S SYNDROME
     Route: 048
  5. GLYCERIN. [Concomitant]
     Active Substance: GLYCERIN
     Route: 065
  6. DUPHALAC [Concomitant]
     Active Substance: LACTULOSE
     Route: 065
  7. LOXAPAC [Interacting]
     Active Substance: LOXAPINE
     Indication: KORSAKOFF^S SYNDROME
     Route: 048
  8. LEPTICUR [Interacting]
     Active Substance: TROPATEPINE HYDROCHLORIDE
     Indication: KORSAKOFF^S SYNDROME
     Route: 048
  9. HALDOL [Suspect]
     Active Substance: HALOPERIDOL
     Indication: KORSAKOFF^S SYNDROME
     Route: 048
  10. ACTISKENAN [Interacting]
     Active Substance: MORPHINE SULFATE
     Indication: ORAL PAIN
     Route: 048
     Dates: start: 20181001, end: 20181007
  11. NORMACOL [Concomitant]
     Active Substance: HERBALS\KARAYA GUM
     Route: 065
  12. LOXAPAC [Interacting]
     Active Substance: LOXAPINE
     Indication: KORSAKOFF^S SYNDROME
     Route: 048
  13. ZYPREXA [Interacting]
     Active Substance: OLANZAPINE
     Indication: KORSAKOFF^S SYNDROME
     Route: 048
  14. LEPTICUR [Interacting]
     Active Substance: TROPATEPINE HYDROCHLORIDE
     Indication: KORSAKOFF^S SYNDROME
     Route: 048
  15. THERALENE [Interacting]
     Active Substance: TRIMEPRAZINE
     Indication: INSOMNIA
     Route: 048
  16. ATARAX [Interacting]
     Active Substance: HYDROXYZINE HYDROCHLORIDE
     Indication: KORSAKOFF^S SYNDROME
     Route: 048
  17. TRANXENE [Interacting]
     Active Substance: CLORAZEPATE DIPOTASSIUM
     Indication: PSYCHIATRIC DISORDER PROPHYLAXIS
     Route: 048
  18. SKENAN [Interacting]
     Active Substance: MORPHINE SULFATE
     Indication: ORAL PAIN
     Route: 048
     Dates: start: 20181001, end: 20181007
  19. XATRAL [Concomitant]
     Active Substance: ALFUZOSIN
     Route: 065

REACTIONS (7)
  - Dyspnoea [Recovered/Resolved]
  - Off label use [Unknown]
  - Drug interaction [Recovered/Resolved]
  - Product use in unapproved indication [Unknown]
  - Catatonia [Recovered/Resolved]
  - Urinary retention [Recovered/Resolved]
  - Subileus [Recovered/Resolved]

NARRATIVE: CASE EVENT DATE: 20181001
